FAERS Safety Report 10770227 (Version 6)
Quarter: 2015Q3

REPORT INFORMATION
  Report Type: Report from Study
  Country: BE (occurrence: BE)
  Receive Date: 20150206
  Receipt Date: 20150724
  Transmission Date: 20151125
  Serious: Yes (Hospitalization)
  Sender: FDA-Public Use
  Company Number: BE-ABBVIE-14P-013-1321984-00

PATIENT
  Age: 51 Year
  Sex: Male

DRUGS (12)
  1. DUODOPA [Suspect]
     Active Substance: CARBIDOPA\LEVODOPA
     Dosage: AM = 3 ML, CD = 2.3 ML/H DURING 16H, ED = 1 ML
     Route: 050
     Dates: start: 20141209, end: 20141218
  2. DUODOPA [Suspect]
     Active Substance: CARBIDOPA\LEVODOPA
     Dosage: MD = 3ML, CD = 2.2ML/H DURING 16HRS, ED= 1ML
     Route: 050
     Dates: start: 20141218, end: 20150106
  3. DUODOPA [Suspect]
     Active Substance: CARBIDOPA\LEVODOPA
     Dosage: AM: 3.5ML, CD: 2.2ML/H DURING 16HRS, ED: 1ML EVERY 3HRS
     Route: 050
     Dates: start: 20150414, end: 20150718
  4. TEGRETOL [Concomitant]
     Active Substance: CARBAMAZEPINE
     Indication: AFFECTIVE DISORDER
  5. DUODOPA [Suspect]
     Active Substance: CARBIDOPA\LEVODOPA
     Dosage: UNKNOWN
     Route: 050
     Dates: start: 20150718
  6. DUODOPA [Suspect]
     Active Substance: CARBIDOPA\LEVODOPA
     Dosage: DOSE CONTINUOUSLY MONITORED AND ADAPTED
     Route: 050
     Dates: start: 20130601, end: 20131218
  7. DUODOPA [Suspect]
     Active Substance: CARBIDOPA\LEVODOPA
     Dosage: AM = 3.5 ML, CD = 2.1 ML/H DURING 16H, ED = 1 ML
     Route: 050
     Dates: start: 20150321, end: 20150414
  8. STALEVO [Concomitant]
     Active Substance: CARBIDOPA\ENTACAPONE\LEVODOPA
     Indication: PARKINSON^S DISEASE
     Dosage: FORM STRENGTH: 150MG/37.5MG/200MG
  9. DUODOPA [Suspect]
     Active Substance: CARBIDOPA\LEVODOPA
     Dosage: AM DOSE= 3ML, CONTIN DOSE= 2.1ML/H DURING 16HRS, EXTRA DOSE=1ML
     Route: 050
     Dates: start: 20150106, end: 20150123
  10. DUODOPA [Suspect]
     Active Substance: CARBIDOPA\LEVODOPA
     Dosage: AM DOSE=3.5ML, CD=2.2ML/H FOR 16HRS AND ED=1ML
     Route: 050
     Dates: start: 20150123, end: 20150321
  11. DUODOPA [Suspect]
     Active Substance: CARBIDOPA\LEVODOPA
     Dosage: AM = 3 ML, CD = 2.1 ML/H DURING 16H, ED = 1 ML
     Route: 050
     Dates: start: 20131218, end: 20141209
  12. DUODOPA [Suspect]
     Active Substance: CARBIDOPA\LEVODOPA
     Indication: PARKINSON^S DISEASE
     Dosage: AM = 5 ML, CD = 2.3 ML/H DURING 16H, ED = 1.5 ML
     Route: 050
     Dates: start: 20130121, end: 20130601

REACTIONS (26)
  - Mobility decreased [Unknown]
  - Asthenia [Recovering/Resolving]
  - Depression [Unknown]
  - Anger [Unknown]
  - Confusional state [Unknown]
  - Unevaluable event [Unknown]
  - Mental disorder [Unknown]
  - Paranoia [Unknown]
  - Stress [Unknown]
  - Psychotic disorder [Unknown]
  - Agitation [Unknown]
  - Treatment noncompliance [Unknown]
  - Depressed mood [Unknown]
  - Parkinson^s disease [Recovered/Resolved]
  - Dyskinesia [Not Recovered/Not Resolved]
  - Bipolar disorder [Unknown]
  - Sexual inhibition [Unknown]
  - Panic attack [Unknown]
  - Freezing phenomenon [Not Recovered/Not Resolved]
  - Drug ineffective [Unknown]
  - On and off phenomenon [Not Recovered/Not Resolved]
  - Malaise [Unknown]
  - Dyskinesia [Not Recovered/Not Resolved]
  - Pain [Unknown]
  - Suspiciousness [Unknown]
  - Depression [Unknown]

NARRATIVE: CASE EVENT DATE: 201412
